FAERS Safety Report 9953567 (Version 1)
Quarter: 2014Q1

REPORT INFORMATION
  Report Type: Report from Study
  Country: US (occurrence: US)
  Receive Date: 20140304
  Receipt Date: 20140304
  Transmission Date: 20141002
  Serious: Yes (Death, Hospitalization)
  Sender: FDA-Public Use
  Company Number: PHEH2014US004309

PATIENT
  Age: 9 Year
  Sex: Male

DRUGS (1)
  1. TOBI [Suspect]
     Dosage: (300 MG/5 ML) BID
     Route: 055

REACTIONS (1)
  - Death [Fatal]
